FAERS Safety Report 7035317-8 (Version None)
Quarter: 2010Q4

REPORT INFORMATION
  Report Type: 
  Country: None (occurrence: None)
  Receive Date: 20101008
  Receipt Date: 20101001
  Transmission Date: 20110411
  Serious: Yes (Other)
  Sender: FDA-Public Use
  Company Number: B0677460A

PATIENT
  Age: 67 Year
  Sex: Male

DRUGS (1)
  1. HYCAMTIN [Suspect]
     Indication: SMALL CELL LUNG CANCER RECURRENT
     Dosage: 4MGM2 PER DAY
     Route: 065

REACTIONS (3)
  - DISEASE PROGRESSION [None]
  - GENERAL PHYSICAL HEALTH DETERIORATION [None]
  - THROMBOCYTOPENIA [None]
